FAERS Safety Report 7589013-9 (Version None)
Quarter: 2011Q3

REPORT INFORMATION
  Report Type: 
  Country: None (occurrence: None)
  Receive Date: 20110705
  Receipt Date: 20110303
  Transmission Date: 20111222
  Serious: Yes (Hospitalization, Other)
  Sender: FDA-Public Use
  Company Number: US-BAYER-2010-008383

PATIENT
  Age: 29 Year
  Sex: Female
  Weight: 86.168 kg

DRUGS (10)
  1. ZYRTEC [Concomitant]
  2. PEPCID [Concomitant]
  3. ATIVAN [Concomitant]
     Dosage: 1 MG, HS
     Route: 048
  4. DICYCLOMINE [Concomitant]
     Dosage: 10 MG, QID
     Route: 048
     Dates: start: 20080103
  5. REGLAN [Concomitant]
     Dosage: 10 MG, QID
     Route: 048
  6. SOLODYN [Concomitant]
     Dosage: 135 MG, UNK
     Route: 048
  7. YAZ [Suspect]
     Indication: ACNE
     Dosage: UNK UNK, QD
     Dates: start: 20060101, end: 20080101
  8. YASMIN [Suspect]
     Indication: ACNE
     Dosage: UNK UNK, QD
     Dates: start: 20060101, end: 20080101
  9. MONODOX [Concomitant]
     Dosage: 100 MG, BID
     Route: 048
  10. AMBIEN [Concomitant]
     Dosage: 10 MG, HS
     Route: 048
     Dates: start: 20080118

REACTIONS (5)
  - INJURY [None]
  - GALLBLADDER DISORDER [None]
  - PAIN [None]
  - CHOLELITHIASIS [None]
  - CHOLECYSTITIS CHRONIC [None]
